FAERS Safety Report 12564767 (Version 2)
Quarter: 2016Q3

REPORT INFORMATION
  Report Type: Spontaneous
  Country: US (occurrence: US)
  Receive Date: 20160718
  Receipt Date: 20160907
  Transmission Date: 20161109
  Serious: No
  Sender: FDA-Public Use
  Company Number: US-JAZZ-2016-US-001210

PATIENT
  Age: 40 Year
  Sex: Male
  Weight: 72.11 kg

DRUGS (6)
  1. MULTI VIT [Concomitant]
     Indication: PRODUCT USED FOR UNKNOWN INDICATION
     Dosage: UNK
  2. XYREM [Suspect]
     Active Substance: SODIUM OXYBATE
     Indication: CATAPLEXY
     Dosage: DOSE ADJUSTMENTS
     Route: 048
  3. XYREM [Suspect]
     Active Substance: SODIUM OXYBATE
     Indication: NARCOLEPSY
     Dosage: 2.25 G, BID
     Route: 048
     Dates: start: 200805, end: 200805
  4. NUVIGIL 250 [Concomitant]
     Indication: NARCOLEPSY
     Dosage: UNK
  5. XYREM [Suspect]
     Active Substance: SODIUM OXYBATE
     Dosage: 3.75 G, BID
     Route: 048
     Dates: start: 201211
  6. NUVIGIL 150 [Concomitant]
     Indication: NARCOLEPSY
     Dosage: UNK

REACTIONS (6)
  - Treatment noncompliance [Unknown]
  - Nerve compression [Recovering/Resolving]
  - Disorientation [Unknown]
  - Somnolence [Unknown]
  - Activities of daily living impaired [Unknown]
  - Hypoaesthesia [Unknown]

NARRATIVE: CASE EVENT DATE: 201509
